FAERS Safety Report 18378636 (Version 24)
Quarter: 2024Q3

REPORT INFORMATION
  Report Type: Spontaneous
  Country: JP (occurrence: JP)
  Receive Date: 20201013
  Receipt Date: 20240722
  Transmission Date: 20241016
  Serious: Yes (Death, Hospitalization, Other)
  Sender: PFIZER
  Company Number: JP-PFIZER INC-2020390357

PATIENT
  Sex: Female
  Weight: 40 kg

DRUGS (30)
  1. LEUCOVORIN [Suspect]
     Active Substance: LEUCOVORIN\LEUCOVORIN CALCIUM
     Dosage: UNK
  2. METHOTREXATE SODIUM [Suspect]
     Active Substance: METHOTREXATE SODIUM
     Indication: Acute leukaemia
     Dosage: 5 MG
  3. METHOTREXATE SODIUM [Suspect]
     Active Substance: METHOTREXATE SODIUM
     Dosage: 1400 MG FOR AROUND 2 DAYS
  4. METHOTREXATE SODIUM [Suspect]
     Active Substance: METHOTREXATE SODIUM
     Dosage: 100 MG
  5. METHOTREXATE SODIUM [Suspect]
     Active Substance: METHOTREXATE SODIUM
     Dosage: 4100 MG, TWICE
  6. METHOTREXATE SODIUM [Suspect]
     Active Substance: METHOTREXATE SODIUM
     Dosage: 4 G (4 AMPULES OF 1000 MG) ONCE
  7. METHOTREXATE SODIUM [Suspect]
     Active Substance: METHOTREXATE SODIUM
     Dosage: 4000 MG FOR TWO CONSECUTIVE DAYS
  8. METHOTREXATE SODIUM [Suspect]
     Active Substance: METHOTREXATE SODIUM
     Dosage: 15 MG
     Route: 037
  9. METHOTREXATE SODIUM [Suspect]
     Active Substance: METHOTREXATE SODIUM
     Dosage: 12.5 MG
     Route: 037
  10. METHOTREXATE SODIUM [Suspect]
     Active Substance: METHOTREXATE SODIUM
     Dosage: UNK
  11. SOLU-CORTEF [Suspect]
     Active Substance: HYDROCORTISONE SODIUM SUCCINATE
     Indication: Acute lymphocytic leukaemia
     Dosage: 50 MG
     Route: 037
  12. SOLU-CORTEF [Suspect]
     Active Substance: HYDROCORTISONE SODIUM SUCCINATE
     Indication: Acute leukaemia
     Dosage: 50 MG, TWICE MONTHLY
     Route: 042
  13. SOLU-MEDROL [Suspect]
     Active Substance: METHYLPREDNISOLONE SODIUM SUCCINATE
     Indication: Acute leukaemia
     Dosage: 500 MG (FOR 6 DAYS) (X 6, WITH ANTICANCER DRUGS)
     Route: 042
  14. SOLU-MEDROL [Suspect]
     Active Substance: METHYLPREDNISOLONE SODIUM SUCCINATE
     Indication: Acute lymphocytic leukaemia
  15. VFEND [Suspect]
     Active Substance: VORICONAZOLE
     Indication: Fungal infection
     Dosage: 600 MG, DAILY
     Route: 048
  16. VFEND [Suspect]
     Active Substance: VORICONAZOLE
     Dosage: 300 MG
     Route: 048
     Dates: end: 202003
  17. FLUCONAZOLE [Suspect]
     Active Substance: FLUCONAZOLE
     Indication: Infection
     Dosage: 100 MG
  18. PREDONINE [Suspect]
     Active Substance: PREDNISOLONE
     Dosage: 100 MG, DAILY
     Route: 048
  19. CEFEPIME [Concomitant]
     Active Substance: CEFEPIME HYDROCHLORIDE
     Dosage: UNK
  20. DIAMOX SEQUELS [Concomitant]
     Active Substance: ACETAZOLAMIDE
     Indication: Glaucoma
     Dosage: UNK
  21. DIAMOX SEQUELS [Concomitant]
     Active Substance: ACETAZOLAMIDE
     Indication: Intraocular pressure decreased
  22. CYTARABINE [Concomitant]
     Active Substance: CYTARABINE
     Dosage: UNK
  23. CYCLOPHOSPHAMIDE [Concomitant]
     Active Substance: CYCLOPHOSPHAMIDE
     Dosage: UNK
  24. VANCOMYCIN HYDROCHLORIDE [Concomitant]
     Active Substance: VANCOMYCIN HYDROCHLORIDE
     Dosage: UNK
  25. TEICOPLANIN [Concomitant]
     Active Substance: TEICOPLANIN
     Dosage: UNK
  26. FLUDARA [Concomitant]
     Active Substance: FLUDARABINE PHOSPHATE
     Dosage: UNK
  27. PROGRAF [Concomitant]
     Active Substance: TACROLIMUS
     Dosage: UNK
  28. PREDNISOLONE ACETATE [Concomitant]
     Active Substance: PREDNISOLONE ACETATE
     Dosage: 100 MG, DAILY
     Route: 048
  29. PREDNISOLONE ACETATE [Concomitant]
     Active Substance: PREDNISOLONE ACETATE
     Dosage: 60 MG
  30. NEORAL [Concomitant]
     Active Substance: CYCLOSPORINE
     Dosage: UNK

REACTIONS (45)
  - Myelosuppression [Fatal]
  - Shock [Fatal]
  - Infection [Fatal]
  - Contraindicated product administered [Fatal]
  - Cutaneous mucormycosis [Fatal]
  - Mucormycosis [Fatal]
  - Pneumocystis jirovecii pneumonia [Fatal]
  - Second primary malignancy [Unknown]
  - Skin cancer [Unknown]
  - Interstitial lung disease [Unknown]
  - Sepsis [Unknown]
  - Cytomegalovirus infection [Unknown]
  - Staphylococcal infection [Not Recovered/Not Resolved]
  - Glaucoma [Unknown]
  - Aspergillus infection [Unknown]
  - Disseminated intravascular coagulation [Unknown]
  - Hepatic failure [Unknown]
  - Hepatic cirrhosis [Unknown]
  - Hepatic encephalopathy [Unknown]
  - Weight decreased [Unknown]
  - Drug ineffective [Unknown]
  - Intraocular pressure increased [Unknown]
  - Intracranial pressure increased [Unknown]
  - Cerebral infarction [Unknown]
  - Lymphocyte count decreased [Unknown]
  - Candida infection [Unknown]
  - Neoplasm progression [Unknown]
  - Fungal infection [Unknown]
  - Viral infection [Unknown]
  - Bacterial infection [Unknown]
  - Dyspnoea [Unknown]
  - Renal disorder [Unknown]
  - Decreased appetite [Unknown]
  - Eye disorder [Unknown]
  - Movement disorder [Unknown]
  - Hepatomegaly [Unknown]
  - Blood iron increased [Unknown]
  - Platelet count decreased [Unknown]
  - Dyssomnia [Unknown]
  - Fatigue [Unknown]
  - Off label use [Unknown]
  - Product use in unapproved indication [Unknown]
  - Product use issue [Unknown]
  - Off label use [Unknown]
  - Incorrect route of product administration [Unknown]

NARRATIVE: CASE EVENT DATE: 20200201
